FAERS Safety Report 10270244 (Version 2)
Quarter: 2014Q3

REPORT INFORMATION
  Report Type: Other
  Country: US (occurrence: US)
  Receive Date: 20140701
  Receipt Date: 20140701
  Transmission Date: 20150326
  Serious: Yes (Death, Other)
  Sender: FDA-Public Use
  Company Number: US-GSKPPD-2014GSK000450

PATIENT
  Age: 72 Year
  Sex: Male
  Weight: 86.26 kg

DRUGS (2)
  1. AVANDIA [Suspect]
     Active Substance: ROSIGLITAZONE MALEATE
     Indication: DIABETES MELLITUS
     Route: 048
  2. AVANDAMET [Suspect]
     Active Substance: METFORMIN HYDROCHLORIDE\ROSIGLITAZONE MALEATE
     Indication: DIABETES MELLITUS
     Route: 048
     Dates: start: 20070305

REACTIONS (6)
  - Coronary artery disease [Not Recovered/Not Resolved]
  - Pleural effusion [Not Recovered/Not Resolved]
  - Arteriosclerosis coronary artery [Fatal]
  - Ventricular hypertrophy [Not Recovered/Not Resolved]
  - Hypertensive heart disease [Not Recovered/Not Resolved]
  - Cardiomegaly [Not Recovered/Not Resolved]

NARRATIVE: CASE EVENT DATE: 20091203
